FAERS Safety Report 4344152-0 (Version None)
Quarter: 2004Q1

REPORT INFORMATION
  Report Type: 
  Country: None (occurrence: None)
  Receive Date: 20040319
  Receipt Date: 20040213
  Transmission Date: 20041129
  Serious: No
  Sender: FDA-Public Use
  Company Number: US-JNJFOC-20040204163

PATIENT
  Age: 18 Year
  Sex: Female

DRUGS (5)
  1. ORTHO EVRA [Suspect]
     Indication: CONTRACEPTION
     Dosage: 1 DOSE(S), 3 IN 4 WEEK, TRANSDERMAL
     Route: 062
     Dates: start: 20040101, end: 20040213
  2. SINGULAR (MONTELUKAST SODIUM) [Concomitant]
  3. PRILOSEC [Concomitant]
  4. NEBULIZERS (OTHER RESPIRATORY SYSTEM PRODUCTS) [Concomitant]
  5. INHALERS (ANTI-ASTHMATICS) INHALATION [Concomitant]

REACTIONS (1)
  - ASTHMA [None]
